FAERS Safety Report 12214863 (Version 1)
Quarter: 2016Q1

REPORT INFORMATION
  Report Type: Spontaneous
  Country: US (occurrence: US)
  Receive Date: 20160328
  Receipt Date: 20160328
  Transmission Date: 20160526
  Serious: No
  Sender: FDA-Public Use
  Company Number: US-BRACCO-012922

PATIENT
  Age: 11 Day

DRUGS (1)
  1. GASTROGRAFIN [Suspect]
     Active Substance: DIATRIZOATE MEGLUMINE\DIATRIZOATE SODIUM
     Indication: COMPUTERISED TOMOGRAM
     Dosage: ADMINISTERED THROUGH INTRAVENOUS PERCUTANEOUS INDWELLING CENTRAL CATHETER (PICC) LINE
     Route: 042
     Dates: start: 20151115, end: 20151115

REACTIONS (2)
  - No adverse event [Recovered/Resolved]
  - Incorrect route of drug administration [Recovered/Resolved]

NARRATIVE: CASE EVENT DATE: 20151115
